FAERS Safety Report 6713257-9 (Version None)
Quarter: 2010Q2

REPORT INFORMATION
  Report Type: 
  Country: None (occurrence: None)
  Receive Date: 20100506
  Receipt Date: 20100504
  Transmission Date: 20101027
  Serious: Yes (Other)
  Sender: FDA-Public Use
  Company Number: PHHY2009BR49253

PATIENT
  Sex: Male
  Weight: 52 kg

DRUGS (2)
  1. ZELMAC [Suspect]
     Indication: IRRITABLE BOWEL SYNDROME
     Dosage: ONE TABLET DAILY
     Route: 048
     Dates: start: 20081201
  2. ZELMAC [Suspect]
     Dosage: ONE TABLET ON ALTERNATE DAYS
     Route: 048
     Dates: end: 20090301

REACTIONS (5)
  - ANXIETY [None]
  - DYSPNOEA [None]
  - GASTROINTESTINAL PAIN [None]
  - MALAISE [None]
  - SURGERY [None]
